FAERS Safety Report 4949423-2 (Version None)
Quarter: 2006Q1

REPORT INFORMATION
  Report Type: 
  Country: None (occurrence: None)
  Receive Date: 20060321
  Receipt Date: 20060310
  Transmission Date: 20060701
  Serious: Yes (Death)
  Sender: FDA-Public Use
  Company Number: US-AMGEN-US171959

PATIENT
  Sex: Male

DRUGS (8)
  1. EPOGEN [Suspect]
     Indication: DIALYSIS
  2. LANTUS [Concomitant]
  3. INSULIN [Concomitant]
  4. DILANTIN [Concomitant]
  5. ERYTHROMYCIN [Concomitant]
  6. LABETALOL HCL [Concomitant]
  7. HYDRALAZINE HYDROCHLORIDE [Concomitant]
  8. ASPIRIN [Concomitant]

REACTIONS (3)
  - ANAEMIA [None]
  - ANOXIC ENCEPHALOPATHY [None]
  - RESPIRATORY ARREST [None]
